FAERS Safety Report 19829759 (Version 1)
Quarter: 2021Q3

REPORT INFORMATION
  Report Type: Spontaneous
  Country: US (occurrence: US)
  Receive Date: 20210915
  Receipt Date: 20210915
  Transmission Date: 20211014
  Serious: No
  Sender: FDA-Public Use
  Company Number: US-AUROBINDO-AUR-APL-2020-063456

PATIENT
  Age: 64 Year
  Sex: Female

DRUGS (2)
  1. PAROXETINE. [Suspect]
     Active Substance: PAROXETINE
     Indication: DEPRESSION
  2. PAROXETINE. [Suspect]
     Active Substance: PAROXETINE
     Indication: ANXIETY
     Dosage: 45 MILLIGRAM, ONCE A DAY
     Route: 048

REACTIONS (9)
  - Arthralgia [Unknown]
  - Decreased appetite [Unknown]
  - Feeling abnormal [Unknown]
  - Sinus disorder [Unknown]
  - Asthenia [Unknown]
  - Abdominal distension [Unknown]
  - Anxiety [Unknown]
  - Apathy [Unknown]
  - Feeling jittery [Unknown]

NARRATIVE: CASE EVENT DATE: 20201004
